FAERS Safety Report 20611437 (Version 1)
Quarter: 2022Q1

REPORT INFORMATION
  Report Type: Spontaneous
  Country: US (occurrence: US)
  Receive Date: 20220318
  Receipt Date: 20220318
  Transmission Date: 20220424
  Serious: No
  Sender: FDA-Public Use
  Company Number: US-AMNEAL PHARMACEUTICALS-2021-AMRX-01019

PATIENT
  Sex: Female

DRUGS (1)
  1. BUPROPION HYDROCHLORIDE SR [Suspect]
     Active Substance: BUPROPION HYDROCHLORIDE
     Indication: Neuralgia
     Dosage: UNK
     Route: 065

REACTIONS (7)
  - Tearfulness [Unknown]
  - Feeling abnormal [Unknown]
  - Anger [Unknown]
  - Asthenia [Unknown]
  - Psychiatric symptom [Unknown]
  - Product substitution issue [Unknown]
  - Off label use [Unknown]
